FAERS Safety Report 5609951-3 (Version None)
Quarter: 2008Q1

REPORT INFORMATION
  Report Type: 
  Country: None (occurrence: None)
  Receive Date: 20080129
  Receipt Date: 20080116
  Transmission Date: 20080703
  Serious: Yes (Hospitalization)
  Sender: FDA-Public Use
  Company Number: 2008BI001363

PATIENT
  Age: 67 Year
  Sex: Female

DRUGS (1)
  1. TYSABRI [Suspect]
     Indication: MULTIPLE SCLEROSIS
     Dosage: 300 MG; QM; IV
     Route: 030
     Dates: start: 20061014

REACTIONS (5)
  - CONDITION AGGRAVATED [None]
  - DEPRESSED LEVEL OF CONSCIOUSNESS [None]
  - MULTIPLE SCLEROSIS [None]
  - PYREXIA [None]
  - UNRESPONSIVE TO STIMULI [None]
